FAERS Safety Report 4417618-2 (Version None)
Quarter: 2004Q3

REPORT INFORMATION
  Report Type: 
  Country: None (occurrence: None)
  Receive Date: 20040803
  Receipt Date: 20040726
  Transmission Date: 20050211
  Serious: Yes (Death)
  Sender: FDA-Public Use
  Company Number: DE-JNJFOC-20040707169

PATIENT
  Age: 75 Year
  Sex: Male

DRUGS (27)
  1. LEVOFLOXACIN [Suspect]
     Indication: PNEUMONIA
     Dosage: INTRAVENOUS
     Route: 042
     Dates: start: 20031123, end: 20031124
  2. LEVOFLOXACIN [Suspect]
     Indication: PNEUMONIA
     Dates: start: 20031125, end: 20031126
  3. ALBUTEROL [Concomitant]
  4. ATROVENT [Concomitant]
  5. XOPENEX [Concomitant]
  6. ATIVAN [Concomitant]
  7. PEPCID [Concomitant]
  8. CATAPRES [Concomitant]
  9. NITRO-DUR [Concomitant]
  10. MAALOX PLUS (MAALOX PLUS) [Concomitant]
  11. CARDIZEM [Concomitant]
  12. SLOW-K [Concomitant]
  13. PROTONIX [Concomitant]
  14. CROMOLYN SODIUM (CROMOGLICATE SODIUM) [Concomitant]
  15. DULCOLAX [Concomitant]
  16. DISALCID (SALSALATE) [Concomitant]
  17. AMBIEN [Concomitant]
  18. MYLANTA (MYLANTA) [Concomitant]
  19. GAS X (DEMITICONE, ACTIVATED) [Concomitant]
  20. NORCO (VICODIN) [Concomitant]
  21. MORPHINE [Concomitant]
  22. KCL (POTASSIUM CHLORIDE) [Concomitant]
  23. SOLU-MEDROL [Concomitant]
  24. LASIX [Concomitant]
  25. ZOFRAN [Concomitant]
  26. SEREVENT [Concomitant]
  27. THEOPHYLLINE [Concomitant]

REACTIONS (3)
  - CHRONIC OBSTRUCTIVE AIRWAYS DISEASE EXACERBATED [None]
  - GENERAL PHYSICAL HEALTH DETERIORATION [None]
  - ORAL CANDIDIASIS [None]
